FAERS Safety Report 14411802 (Version 1)
Quarter: 2018Q1

REPORT INFORMATION
  Report Type: Spontaneous
  Country: GR (occurrence: GR)
  Receive Date: 20180119
  Receipt Date: 20180119
  Transmission Date: 20180509
  Serious: Yes (Hospitalization)
  Sender: FDA-Public Use
  Company Number: GR-LANNETT COMPANY, INC.-GR-2018LAN000012

PATIENT
  Age: 30 Year
  Sex: Male

DRUGS (3)
  1. PALIPERIDONE PALMITATE [Suspect]
     Active Substance: PALIPERIDONE PALMITATE
     Indication: SCHIZOPHRENIA
     Dosage: UNK
     Route: 048
  2. HALOPERIDOL LACTATE. [Suspect]
     Active Substance: HALOPERIDOL LACTATE
     Indication: SCHIZOPHRENIA
     Dosage: 10 MG, UNK
     Route: 042
  3. PALIPERIDONE PALMITATE [Suspect]
     Active Substance: PALIPERIDONE PALMITATE
     Dosage: 150 MG, ONCE A MONTH
     Route: 030

REACTIONS (3)
  - Therapeutic product cross-reactivity [Recovering/Resolving]
  - Mucosal hypertrophy [Recovering/Resolving]
  - Pharyngeal oedema [Recovering/Resolving]
